FAERS Safety Report 11231228 (Version 1)
Quarter: 2015Q3

REPORT INFORMATION
  Report Type: Report from Study
  Country: TW (occurrence: TW)
  Receive Date: 20150701
  Receipt Date: 20150701
  Transmission Date: 20151125
  Serious: Yes (Hospitalization, Other)
  Sender: FDA-Public Use
  Company Number: TW-MERCK-1506TWN014131

PATIENT

DRUGS (3)
  1. ALENDRONATE SODIUM. [Suspect]
     Active Substance: ALENDRONATE SODIUM
     Indication: OSTEOPOROSIS
     Dosage: UNK
  2. CALCITONIN [Suspect]
     Active Substance: CALCITONIN
  3. RALOXIFENE. [Suspect]
     Active Substance: RALOXIFENE

REACTIONS (1)
  - Femur fracture [Not Recovered/Not Resolved]
